FAERS Safety Report 16043778 (Version 1)
Quarter: 2019Q1

REPORT INFORMATION
  Report Type: Spontaneous
  Country: US (occurrence: US)
  Receive Date: 20190306
  Receipt Date: 20190306
  Transmission Date: 20190418
  Serious: No
  Sender: FDA-Public Use
  Company Number: US-009507513-1902USA006792

PATIENT
  Sex: Female
  Weight: 58.97 kg

DRUGS (3)
  1. ACETAMINOPHEN (+) OXYCODONE HYDROCHLORIDE [Concomitant]
     Active Substance: ACETAMINOPHEN\OXYCODONE HYDROCHLORIDE
     Indication: TOOTHACHE
     Dosage: 5/325 MG TABLET TAKEN BY MOUTH DAILY
     Route: 048
  2. JANUMET [Suspect]
     Active Substance: METFORMIN HYDROCHLORIDE\SITAGLIPTIN PHOSPHATE
     Indication: BLOOD GLUCOSE ABNORMAL
     Dosage: 1 TABLET BY MOUTH DAILY
     Route: 048
  3. PLAVIX [Concomitant]
     Active Substance: CLOPIDOGREL BISULFATE
     Indication: CEREBROVASCULAR ACCIDENT
     Dosage: 75 MG 1 TABLET TAKEN BY MOUTH DAILY
     Route: 048

REACTIONS (2)
  - Decreased appetite [Unknown]
  - Inappropriate schedule of product administration [Unknown]
